FAERS Safety Report 4633597-7 (Version None)
Quarter: 2005Q2

REPORT INFORMATION
  Report Type: 
  Country: None (occurrence: None)
  Receive Date: 20050412
  Receipt Date: 20050412
  Transmission Date: 20051028
  Serious: Yes (Hospitalization)
  Sender: FDA-Public Use
  Company Number: None

PATIENT
  Sex: Male
  Weight: 52.3 kg

DRUGS (11)
  1. WARFARIN [Suspect]
  2. TETRACYCLINE [Suspect]
     Dosage: 250 MG PO
     Route: 048
  3. AUGMENTIN [Suspect]
     Dosage: 1 TABLET PO
     Route: 048
  4. MULTIVITAMINS W/ MINERALS [Concomitant]
  5. LISINOPRIL [Concomitant]
  6. LACTULOSE [Concomitant]
  7. IPRATROPIUM BROMIDE [Concomitant]
  8. FERROUS SULFATE TAB [Concomitant]
  9. COLLAGENASE [Concomitant]
  10. ACETAMINOPHEN [Concomitant]
  11. ALBUTEROL [Concomitant]

REACTIONS (1)
  - INTERNATIONAL NORMALISED RATIO INCREASED [None]
